FAERS Safety Report 8305449-2 (Version None)
Quarter: 2012Q2

REPORT INFORMATION
  Report Type: 
  Country: None (occurrence: None)
  Receive Date: 20120423
  Receipt Date: 20120419
  Transmission Date: 20120825
  Serious: Yes (Hospitalization)
  Sender: FDA-Public Use
  Company Number: US-GLAXOSMITHKLINE-A0774378A

PATIENT
  Age: 48 Year
  Sex: Male

DRUGS (2)
  1. AVANDARYL [Suspect]
     Indication: DIABETES MELLITUS
     Dosage: 4MG TWICE PER DAY
     Route: 048
     Dates: start: 20060619, end: 20070324
  2. AVANDIA [Suspect]
     Indication: DIABETES MELLITUS
     Dosage: 4MG PER DAY
     Route: 048
     Dates: start: 20070621, end: 20071001

REACTIONS (9)
  - MYOCARDIAL ISCHAEMIA [None]
  - CARDIAC FAILURE [None]
  - NEURALGIA [None]
  - CARDIOGENIC SHOCK [None]
  - HYPOXIC-ISCHAEMIC ENCEPHALOPATHY [None]
  - CARDIAC FAILURE CONGESTIVE [None]
  - SEXUAL DYSFUNCTION [None]
  - CARDIAC ARREST [None]
  - MULTI-ORGAN FAILURE [None]
